FAERS Safety Report 4908953-X (Version None)
Quarter: 2006Q1

REPORT INFORMATION
  Report Type: 
  Country: None (occurrence: None)
  Receive Date: 20060209
  Receipt Date: 20060201
  Transmission Date: 20060701
  Serious: Yes (Other)
  Sender: FDA-Public Use
  Company Number: 2006016304

PATIENT
  Age: 33 Year
  Sex: Female
  Weight: 53.978 kg

DRUGS (4)
  1. BENADRYL [Suspect]
     Indication: URTICARIA
     Dosage: 2 KAPSEALS 1-2 TIMES PER NIGHT, ORAL
     Route: 048
     Dates: start: 20060129
  2. AMOXICILLIN [Suspect]
     Indication: PHARYNGITIS STREPTOCOCCAL
     Dosage: 500 MG, 3 TIMES PER DAY
     Dates: start: 20060101
  3. CONTRACEPTIVE, UNSPECIFIED (CONTRACEPTIVE, UNSPECIFIED) [Concomitant]
  4. B-KOMPLEX ^LECIVA^ (CALCIUM PANTOTHENATE, NICOTINAMIDE, PYRIDOXINE HYD [Concomitant]

REACTIONS (2)
  - LOSS OF CONSCIOUSNESS [None]
  - SOMNOLENCE [None]
